FAERS Safety Report 15656362 (Version 1)
Quarter: 2018Q4

REPORT INFORMATION
  Report Type: Spontaneous
  Country: GB (occurrence: GB)
  Receive Date: 20181126
  Receipt Date: 20181126
  Transmission Date: 20190205
  Serious: Yes (Life-Threatening, Hospitalization, Disabling, Other)
  Sender: FDA-Public Use
  Company Number: GB-PFIZER INC-2018480216

PATIENT
  Age: 22 Year
  Sex: Female
  Weight: 76.2 kg

DRUGS (3)
  1. DEPO-PROVERA [Suspect]
     Active Substance: MEDROXYPROGESTERONE ACETATE
     Indication: CONTRACEPTION
     Dosage: 1 DF, (AMPOULE)
     Route: 051
     Dates: start: 20121001, end: 20181001
  2. VITAMIN B12 + FOLIC ACID [Concomitant]
     Dosage: UNK
  3. CITALOPRAM HYDROCHLORIDE [Concomitant]
     Active Substance: CITALOPRAM HYDROCHLORIDE
     Dosage: UNK

REACTIONS (7)
  - Depression suicidal [Not Recovered/Not Resolved]
  - Lethargy [Unknown]
  - Abnormal weight gain [Not Recovered/Not Resolved]
  - Myalgia [Not Recovered/Not Resolved]
  - Cushing^s syndrome [Not Recovered/Not Resolved]
  - Hypoglycaemia [Not Recovered/Not Resolved]
  - Fatigue [Not Recovered/Not Resolved]

NARRATIVE: CASE EVENT DATE: 20121001
